FAERS Safety Report 5508203-X (Version None)
Quarter: 2007Q4

REPORT INFORMATION
  Report Type: 
  Country: None (occurrence: None)
  Receive Date: 20071106
  Receipt Date: 20071025
  Transmission Date: 20080405
  Serious: Yes (Other)
  Sender: FDA-Public Use
  Company Number: JP-PFIZER INC-2007090453

PATIENT
  Age: 17 Year
  Sex: Female

DRUGS (2)
  1. ZITHROMAX [Suspect]
     Indication: EMPYEMA
     Dates: start: 20071022, end: 20071024
  2. EXPECTORANTS [Concomitant]

REACTIONS (2)
  - HAEMORRHAGE SUBCUTANEOUS [None]
  - PLATELET COUNT DECREASED [None]
